FAERS Safety Report 10248961 (Version 1)
Quarter: 2014Q2

REPORT INFORMATION
  Report Type: Spontaneous
  Country: FR (occurrence: FR)
  Receive Date: 20140620
  Receipt Date: 20140620
  Transmission Date: 20141212
  Serious: Yes (Other)
  Sender: FDA-Public Use
  Company Number: FR-EISAI INC-E3810-07200-SPO-FR

PATIENT
  Age: 72 Year
  Sex: Female

DRUGS (3)
  1. PARIET [Suspect]
     Indication: PRODUCT USED FOR UNKNOWN INDICATION
     Route: 048
     Dates: start: 20140614, end: 20140614
  2. LOGIMAX [Concomitant]
     Indication: PRODUCT USED FOR UNKNOWN INDICATION
     Dosage: UNKNOWN
  3. SOLUPRED [Concomitant]
     Indication: PRODUCT USED FOR UNKNOWN INDICATION
     Dosage: UNKNOWN

REACTIONS (6)
  - Jaw disorder [Recovering/Resolving]
  - Vertigo [Recovering/Resolving]
  - Pyrexia [Recovering/Resolving]
  - Feeling abnormal [Recovering/Resolving]
  - Jaundice [Not Recovered/Not Resolved]
  - Nausea [Recovering/Resolving]
